FAERS Safety Report 7539895 (Version 2)
Quarter: 2019Q1

REPORT INFORMATION
  Report Type: Spontaneous
  Country: GB (occurrence: GB)
  Receive Date: 20100813
  Receipt Date: 20190208
  Transmission Date: 20190418
  Serious: Yes (Disabling)
  Sender: FDA-Public Use
  Company Number: GB-PFIZER INC-2010098320

PATIENT
  Age: 43 Year
  Sex: Female

DRUGS (1)
  1. CHAMPIX [Suspect]
     Active Substance: VARENICLINE TARTRATE
     Dosage: UNK
     Route: 048
     Dates: start: 20100718

REACTIONS (4)
  - Crying [Unknown]
  - Mental disorder [Recovering/Resolving]
  - Hallucination [Unknown]
  - Sleep disorder [Unknown]

NARRATIVE: CASE EVENT DATE: 2010
